FAERS Safety Report 7457352-8 (Version None)
Quarter: 2011Q2

REPORT INFORMATION
  Report Type: 
  Country: None (occurrence: None)
  Receive Date: 20110504
  Receipt Date: 20110422
  Transmission Date: 20111010
  Serious: Yes (Other)
  Sender: FDA-Public Use
  Company Number: JP-TEVA-278881ISR

PATIENT

DRUGS (4)
  1. VINORELBINE TARTRATE [Suspect]
     Indication: SMALL CELL LUNG CANCER STAGE UNSPECIFIED
  2. PEMETREXED [Suspect]
  3. AMIODARONE HCL [Suspect]
  4. CISPLATIN [Suspect]

REACTIONS (2)
  - LUNG DISORDER [None]
  - INTERSTITIAL LUNG DISEASE [None]
